FAERS Safety Report 4302382-8 (Version None)
Quarter: 2004Q1

REPORT INFORMATION
  Report Type: 
  Country: None (occurrence: None)
  Receive Date: 20040220
  Receipt Date: 20040127
  Transmission Date: 20041129
  Serious: Yes (Death)
  Sender: FDA-Public Use
  Company Number: F01200301498

PATIENT
  Age: 72 Year
  Sex: Male

DRUGS (6)
  1. (OXALIPLATIN) - SOLUTION - 130 MG/M2 [Suspect]
     Indication: COLORECTAL CANCER
     Dosage: 130 MG/M2 Q3W INTRAVENOUS NOS
     Route: 042
     Dates: start: 20031128, end: 20031128
  2. (OXALIPLATIN) - SOLUTION - 130 MG/M2 [Suspect]
     Indication: METASTASIS
     Dosage: 130 MG/M2 Q3W INTRAVENOUS NOS
     Route: 042
     Dates: start: 20031128, end: 20031128
  3. (RALTITREXED) - SOLUTION - 3 MG/M2 [Suspect]
     Dosage: 3 MG/M2 INTRAVENOUS NOS
     Route: 042
     Dates: start: 20031128, end: 20031128
  4. ATORVENT (IPRATROPIUM BROMIDE) [Concomitant]
  5. PULMICORT [Concomitant]
  6. PARACETAMOL [Concomitant]

REACTIONS (23)
  - ABDOMINAL PAIN UPPER [None]
  - ADRENAL MASS [None]
  - BLOOD ALBUMIN DECREASED [None]
  - BLOOD GLUCOSE INCREASED [None]
  - BLOOD POTASSIUM DECREASED [None]
  - GAMMA-GLUTAMYLTRANSFERASE INCREASED [None]
  - GASTROINTESTINAL HAEMORRHAGE [None]
  - HAEMATEMESIS [None]
  - HAEMOGLOBIN DECREASED [None]
  - HEPATIC CYST [None]
  - HEPATIC LESION [None]
  - HEPATIC NECROSIS [None]
  - LOSS OF CONSCIOUSNESS [None]
  - LUNG NEOPLASM [None]
  - LYMPHADENOPATHY [None]
  - METASTASES TO LUNG [None]
  - NEUTROPHIL COUNT ABNORMAL [None]
  - PLATELET COUNT INCREASED [None]
  - PROTEIN TOTAL DECREASED [None]
  - PULMONARY NECROSIS [None]
  - RED BLOOD CELL COUNT DECREASED [None]
  - VOMITING [None]
  - WHITE BLOOD CELL COUNT DECREASED [None]
